FAERS Safety Report 24140991 (Version 4)
Quarter: 2024Q4

REPORT INFORMATION
  Report Type: Spontaneous
  Country: JP (occurrence: JP)
  Receive Date: 20240726
  Receipt Date: 20241120
  Transmission Date: 20250114
  Serious: Yes (Death, Hospitalization, Other)
  Sender: BRISTOL-MYERS SQUIBB COMPANY
  Company Number: JP-ONO-2024JP015461

PATIENT
  Age: 83 Year
  Sex: Male

DRUGS (2)
  1. OPDIVO [Suspect]
     Active Substance: NIVOLUMAB
     Indication: Gastric cancer recurrent
     Route: 041
  2. OPDIVO [Suspect]
     Active Substance: NIVOLUMAB
     Route: 041
     Dates: start: 20230309, end: 20240613

REACTIONS (4)
  - Cholangitis sclerosing [Fatal]
  - Hepatic function abnormal [Recovered/Resolved]
  - Hepatic failure [Fatal]
  - Bile duct cancer [Unknown]

NARRATIVE: CASE EVENT DATE: 20240627
